FAERS Safety Report 4611940-2 (Version None)
Quarter: 2005Q2

REPORT INFORMATION
  Report Type: 
  Country: None (occurrence: None)
  Receive Date: 20050308
  Receipt Date: 20041207
  Transmission Date: 20051028
  Serious: Yes (Hospitalization)
  Sender: FDA-Public Use
  Company Number: 2004UW24313

PATIENT
  Age: 73 Year
  Sex: Male

DRUGS (14)
  1. CRESTOR [Suspect]
     Dosage: 10 MG PO
     Dates: start: 20040101
  2. VANTIN [Suspect]
     Dates: start: 20040101, end: 20040813
  3. LIPITOR [Concomitant]
  4. ZETIA [Concomitant]
  5. GLUCOVANCE [Concomitant]
  6. NIFEDIPINE [Concomitant]
  7. DIOVANE [Concomitant]
  8. IMDUR [Concomitant]
  9. ACIPHEX [Concomitant]
  10. TOPROL-XL [Concomitant]
  11. NITROGLYCERIN ^A.L.^ [Concomitant]
  12. ASPIRIN [Concomitant]
  13. PLAVIX [Concomitant]
  14. GLYBURIDE [Concomitant]

REACTIONS (3)
  - ANGINA UNSTABLE [None]
  - PNEUMONIA [None]
  - RENAL IMPAIRMENT [None]
